FAERS Safety Report 5316664-4 (Version None)
Quarter: 2007Q2

REPORT INFORMATION
  Report Type: 
  Country: None (occurrence: None)
  Receive Date: 20070430
  Receipt Date: 20070430
  Transmission Date: 20071010
  Serious: Yes (Hospitalization)
  Sender: FDA-Public Use
  Company Number: None

PATIENT
  Sex: Female
  Weight: 52.1637 kg

DRUGS (2)
  1. QUETIAPINE FUMARATE [Suspect]
     Indication: BIPOLAR DISORDER
     Dosage: 50-300 MG DAILY PO
     Route: 048
     Dates: start: 20070420, end: 20070422
  2. QUETIAPINE FUMARATE [Suspect]
     Indication: PSYCHOTIC DISORDER
     Dosage: 50-300 MG DAILY PO
     Route: 048
     Dates: start: 20070420, end: 20070422

REACTIONS (1)
  - EXTRAPYRAMIDAL DISORDER [None]
